FAERS Safety Report 8455013-X (Version None)
Quarter: 2012Q2

REPORT INFORMATION
  Report Type: 
  Country: None (occurrence: None)
  Receive Date: 20120621
  Receipt Date: 20120619
  Transmission Date: 20120825
  Serious: Yes (Death)
  Sender: FDA-Public Use
  Company Number: US-ABBOTT-12P-163-0899664-00

PATIENT
  Sex: Female
  Weight: 103.06 kg

DRUGS (12)
  1. LEXAPRO [Concomitant]
     Indication: DEPRESSION
     Dosage: DAILY DOSE 10 MG
     Dates: start: 20110707
  2. TRAZODONE HCL [Concomitant]
     Indication: DEPRESSION
     Dosage: DAILY DOSE 150 MG
     Dates: start: 20110715
  3. LUPRON DEPOT [Suspect]
     Indication: ENDOMETRIOSIS
     Route: 050
     Dates: end: 20111117
  4. CLONAZEPAM [Concomitant]
     Indication: ANXIETY
     Dosage: DAILY DOSE 2 MG
     Dates: start: 20110513
  5. AXERT [Concomitant]
     Indication: PRODUCT USED FOR UNKNOWN INDICATION
  6. ZANTAC [Concomitant]
     Indication: PRODUCT USED FOR UNKNOWN INDICATION
  7. TEMAZEPAM [Concomitant]
     Indication: ANXIETY
     Dosage: DAILY DOSE 30 MG
     Dates: start: 20110714
  8. TOPAMAX [Concomitant]
     Indication: PRODUCT USED FOR UNKNOWN INDICATION
  9. SIMVASTATIN [Concomitant]
     Indication: PRODUCT USED FOR UNKNOWN INDICATION
  10. FIORICET [Concomitant]
     Indication: MIGRAINE
     Dosage: DAILY DOSE 10/650
     Dates: start: 20110906
  11. LUPRON DEPOT [Suspect]
     Indication: ENDOMETRIOSIS
  12. TEMAZEPAM [Concomitant]
     Indication: INSOMNIA

REACTIONS (2)
  - PNEUMONIA [None]
  - RESPIRATORY TRACT INFECTION [None]
